FAERS Safety Report 6347594-7 (Version None)
Quarter: 2009Q3

REPORT INFORMATION
  Report Type: 
  Country: None (occurrence: None)
  Receive Date: 20090909
  Receipt Date: 20090909
  Transmission Date: 20100115
  Serious: Yes (Life-Threatening, Hospitalization)
  Sender: FDA-Public Use
  Company Number: None

PATIENT
  Age: 72 Year
  Sex: Male

DRUGS (20)
  1. CYTARABINE [Suspect]
     Indication: ACUTE MYELOID LEUKAEMIA
     Dosage: 20 MG/M2, DAY, SUBCUTANEOUS
     Route: 058
     Dates: start: 20090504, end: 20090513
  2. CYTARABINE [Suspect]
     Indication: ACUTE MYELOID LEUKAEMIA
     Dosage: 20 MG/M2, DAY, SUBCUTANEOUS
     Route: 058
     Dates: start: 20090713, end: 20090722
  3. CYTARABINE [Suspect]
     Indication: ACUTE MYELOID LEUKAEMIA
     Dosage: 20 MG/M2, DAY, SUBCUTANEOUS
     Route: 058
     Dates: start: 20090608
  4. ...... [Concomitant]
  5. ........ [Concomitant]
  6. PREDNISOLONE [Concomitant]
  7. LEUKOPENIA [Concomitant]
  8. OMEPRAZOLE [Concomitant]
  9. ASPARCAM [Concomitant]
  10. ETAMSILATE [Concomitant]
  11. ENALAPRIL MALEATE [Concomitant]
  12. AMINOCAPROIC ACID [Concomitant]
  13. CARTEOLOL HYDROCHLORIDE [Concomitant]
  14. GLYCERYL TRINITRATE [Concomitant]
  15. NIFEDIPINE [Concomitant]
  16. KETOPROFEN [Concomitant]
  17. TRAMADOL HCL [Concomitant]
  18. EGILOK [Concomitant]
  19. SIMVASTATIN [Concomitant]
  20. PERINDOPRIL [Concomitant]

REACTIONS (5)
  - ATRIAL FIBRILLATION [None]
  - CARDIAC FAILURE ACUTE [None]
  - CHEST PAIN [None]
  - MYOCARDIAL INFARCTION [None]
  - PULMONARY OEDEMA [None]
